FAERS Safety Report 9255519 (Version 1)
Quarter: 2013Q2

REPORT INFORMATION
  Report Type: Spontaneous
  Country: ZA (occurrence: None)
  Receive Date: 20130418
  Receipt Date: 20130418
  Transmission Date: 20140414
  Serious: Yes (Hospitalization, Other)
  Sender: FDA-Public Use
  Company Number: 2013000091

PATIENT
  Age: 48 Year
  Sex: Female
  Weight: 90 kg

DRUGS (3)
  1. ACEON [Suspect]
     Indication: HYPERTENSION
  2. GLICLAZIDE (GLICLAZIDE) [Concomitant]
  3. GLUCOPHAGE (METFORMIN HYDROCHLORIDE) [Concomitant]

REACTIONS (4)
  - Hypochloraemia [None]
  - Hypokalaemia [None]
  - Asthenia [None]
  - Chest pain [None]
